FAERS Safety Report 6087983-1 (Version None)
Quarter: 2009Q1

REPORT INFORMATION
  Report Type: 
  Country: None (occurrence: None)
  Receive Date: 20090223
  Receipt Date: 20090216
  Transmission Date: 20090719
  Serious: Yes (Death, Life-Threatening, Hospitalization)
  Sender: FDA-Public Use
  Company Number: US-GENENTECH-277773

PATIENT
  Sex: Female

DRUGS (5)
  1. XOLAIR [Suspect]
     Indication: ASTHMA
     Dosage: UNK
     Route: 058
     Dates: start: 20070215
  2. ZYRTEC [Concomitant]
     Indication: DRUG USE FOR UNKNOWN INDICATION
  3. ADVAIR HFA [Concomitant]
     Indication: DRUG USE FOR UNKNOWN INDICATION
  4. SINGULAIR [Concomitant]
     Indication: DRUG USE FOR UNKNOWN INDICATION
  5. XOPENEX [Concomitant]
     Indication: DRUG USE FOR UNKNOWN INDICATION

REACTIONS (2)
  - ASTHMA [None]
  - CONVULSION [None]
